FAERS Safety Report 25543433 (Version 1)
Quarter: 2025Q3

REPORT INFORMATION
  Report Type: Spontaneous
  Country: US (occurrence: None)
  Receive Date: 20250710
  Receipt Date: 20250710
  Transmission Date: 20251020
  Serious: Yes (Other)
  Sender: FDA-CTU
  Company Number: None

PATIENT
  Age: 8 Year
  Sex: Male
  Weight: 22.5 kg

DRUGS (1)
  1. DEXMETHYLPHENIDATE HYDROCHLORIDE [Suspect]
     Active Substance: DEXMETHYLPHENIDATE HYDROCHLORIDE
     Indication: Attention deficit hyperactivity disorder
     Dosage: FREQUENCY : DAILY;?
     Route: 048
     Dates: start: 20250615, end: 20250616

REACTIONS (5)
  - Abnormal behaviour [None]
  - Head injury [None]
  - Nonspecific reaction [None]
  - Moaning [None]
  - Moaning [None]

NARRATIVE: CASE EVENT DATE: 20250616
